FAERS Safety Report 22053649 (Version 1)
Quarter: 2023Q1

REPORT INFORMATION
  Report Type: Spontaneous
  Country: IN (occurrence: IN)
  Receive Date: 20230302
  Receipt Date: 20230302
  Transmission Date: 20230418
  Serious: Yes (Death, Other)
  Sender: FDA-Public Use
  Company Number: IN-GLENMARK PHARMACEUTICALS-2023GMK079319

PATIENT

DRUGS (1)
  1. AXITINIB [Suspect]
     Active Substance: AXITINIB
     Indication: Renal cell carcinoma
     Dosage: 1 DOSAGE FORM, QD
     Route: 048

REACTIONS (3)
  - Multiple organ dysfunction syndrome [Fatal]
  - Metastases to liver [Fatal]
  - Metastases to lung [Fatal]
